FAERS Safety Report 9279608 (Version 1)
Quarter: 2013Q2

REPORT INFORMATION
  Report Type: Spontaneous
  Country: US (occurrence: US)
  Receive Date: 20130509
  Receipt Date: 20130509
  Transmission Date: 20140414
  Serious: No
  Sender: FDA-Public Use
  Company Number: US-B.I. PHARMACEUTICALS,INC./RIDGEFIELD-2013-BI-12744BP

PATIENT
  Age: 68 Year
  Sex: Female
  Weight: 113 kg

DRUGS (2)
  1. COMBIVENT [Suspect]
     Indication: CHRONIC OBSTRUCTIVE PULMONARY DISEASE
     Dosage: STRENGTH: 20 MCG / 100 MCG; DAILY DOSE: 80 MCG / 400 MCG
     Route: 055
     Dates: start: 20130422
  2. ASPIRIN [Concomitant]
     Indication: DEEP VEIN THROMBOSIS
     Dosage: 81 MG
     Route: 048

REACTIONS (1)
  - Anxiety [Not Recovered/Not Resolved]
